FAERS Safety Report 6259898-7 (Version None)
Quarter: 2009Q3

REPORT INFORMATION
  Report Type: 
  Country: None (occurrence: None)
  Receive Date: 20090708
  Receipt Date: 20090629
  Transmission Date: 20100115
  Serious: Yes (Hospitalization)
  Sender: FDA-Public Use
  Company Number: PHBS2007JP10651

PATIENT
  Sex: Male

DRUGS (7)
  1. ZOMETA [Suspect]
     Indication: METASTASES TO BONE
     Dosage: 4 MG, QMO
     Route: 042
     Dates: start: 20061001, end: 20070601
  2. UFT [Concomitant]
     Dosage: 1200 MG/DAY
     Route: 048
     Dates: start: 20051201
  3. IMUNACE [Concomitant]
     Dosage: 700 KIU, UNK
     Dates: start: 20061013
  4. MOBIC [Concomitant]
     Dosage: 1 DF, UNK
     Route: 048
  5. BLOPRESS [Concomitant]
     Indication: HYPERTENSION
     Dosage: 200 MG, UNK
     Route: 048
     Dates: start: 20061215
  6. NOVORAPID [Concomitant]
     Indication: DIABETES MELLITUS
     Route: 058
     Dates: start: 20051226
  7. SUMIFERON [Concomitant]
     Indication: METASTASES TO BONE
     Dosage: 3 MIU, UNK
     Route: 058
     Dates: start: 20051109, end: 20051118

REACTIONS (15)
  - BONE DISORDER [None]
  - C-REACTIVE PROTEIN INCREASED [None]
  - ERYTHEMA [None]
  - GINGIVAL INFECTION [None]
  - IMPAIRED HEALING [None]
  - INFLAMMATION [None]
  - ORAL PAIN [None]
  - OSTEONECROSIS [None]
  - PYREXIA [None]
  - SWELLING [None]
  - TENDERNESS [None]
  - TOOTH EXTRACTION [None]
  - TOOTHACHE [None]
  - WHITE BLOOD CELL COUNT INCREASED [None]
  - WOUND DRAINAGE [None]
